FAERS Safety Report 9841479 (Version 1)
Quarter: 2014Q1

REPORT INFORMATION
  Report Type: Spontaneous
  Country: US (occurrence: US)
  Receive Date: 20140124
  Receipt Date: 20140124
  Transmission Date: 20141002
  Serious: Yes (Other)
  Sender: FDA-Public Use
  Company Number: US-SA-2014SA009217

PATIENT
  Sex: Male
  Weight: 98 kg

DRUGS (14)
  1. PLAVIX [Suspect]
     Route: 048
  2. ASPIRIN [Concomitant]
  3. ATORVASTATIN [Concomitant]
  4. DIGOXIN [Concomitant]
  5. IRON [Concomitant]
  6. FLUTICASONE [Concomitant]
  7. ADVAIR [Concomitant]
     Route: 048
  8. FUROSEMIDE [Concomitant]
  9. HYDROCORTISONE [Concomitant]
     Indication: HAEMORRHOIDS
  10. ALBUTEROL [Concomitant]
  11. METOPROLOL SUCCINATE [Concomitant]
  12. NAPROXEN SODIUM [Concomitant]
  13. OXYGEN [Concomitant]
  14. IPRATROPIUM BROMIDE [Concomitant]
     Dosage: 2 PUFFS QID
     Route: 045

REACTIONS (4)
  - Nasal disorder [Unknown]
  - Nasal septum disorder [Unknown]
  - Nasal dryness [Unknown]
  - Scab [Unknown]
